FAERS Safety Report 9019791 (Version 4)
Quarter: 2013Q1

REPORT INFORMATION
  Report Type: Spontaneous
  Country: JP (occurrence: JP)
  Receive Date: 20130118
  Receipt Date: 20130221
  Transmission Date: 20140127
  Serious: Yes (Other)
  Sender: FDA-Public Use
  Company Number: JP-JNJFOC-20130108096

PATIENT
  Age: 7 Decade
  Sex: Female

DRUGS (7)
  1. DUROTEP MT [Suspect]
     Indication: SPINAL COLUMN STENOSIS
     Route: 062
  2. DUROTEP MT [Suspect]
     Indication: SPINAL COLUMN STENOSIS
     Route: 062
  3. DUROTEP MT [Suspect]
     Indication: SPINAL COLUMN STENOSIS
     Route: 062
     Dates: start: 2011
  4. DUROTEP MT [Suspect]
     Indication: SPINAL COLUMN STENOSIS
     Route: 062
     Dates: start: 2011
  5. TRAMCET [Suspect]
     Indication: SPINAL COLUMN STENOSIS
     Dosage: 1 DOSE TWO PER DAY
     Route: 048
     Dates: start: 2011
  6. CALONAL [Suspect]
     Indication: PAIN
     Route: 065
  7. CALONAL [Suspect]
     Indication: PAIN
     Route: 065

REACTIONS (4)
  - Gangrene [Unknown]
  - Phantom pain [Unknown]
  - Faecal incontinence [Recovered/Resolved]
  - Drug ineffective [Unknown]
